FAERS Safety Report 11455035 (Version 2)
Quarter: 2015Q3

REPORT INFORMATION
  Report Type: Spontaneous
  Country: JP (occurrence: JP)
  Receive Date: 20150903
  Receipt Date: 20150915
  Transmission Date: 20151125
  Serious: Yes (Other)
  Sender: FDA-Public Use
  Company Number: PHJP2015JP015205

PATIENT
  Age: 75 Year
  Sex: Female

DRUGS (1)
  1. ZOMETA [Suspect]
     Active Substance: ZOLEDRONIC ACID
     Indication: METASTASES TO BONE
     Dosage: UNK
     Route: 041

REACTIONS (8)
  - Osteosclerosis [Recovered/Resolved]
  - Gingival abscess [Recovered/Resolved]
  - Osteolysis [Recovered/Resolved]
  - Osteomyelitis [Recovered/Resolved]
  - Sinusitis [Recovered/Resolved]
  - Primary sequestrum [Recovered/Resolved]
  - Exposed bone in jaw [Recovered/Resolved]
  - Pain in jaw [Recovered/Resolved]
